FAERS Safety Report 18510814 (Version 1)
Quarter: 2020Q4

REPORT INFORMATION
  Report Type: Spontaneous
  Country: US (occurrence: US)
  Receive Date: 20201117
  Receipt Date: 20201117
  Transmission Date: 20210114
  Serious: No
  Sender: FDA-Public Use
  Company Number: US-ALLERGAN-2026226US

PATIENT
  Age: 70 Year
  Sex: Female

DRUGS (1)
  1. COMBIGAN [Suspect]
     Active Substance: BRIMONIDINE TARTRATE\TIMOLOL MALEATE
     Indication: GLAUCOMA
     Dosage: 1 GTT, BID
     Route: 047
     Dates: start: 20200705, end: 20200705

REACTIONS (8)
  - Pruritus [Unknown]
  - Eye pain [Unknown]
  - Drug hypersensitivity [Recovered/Resolved]
  - Nasal congestion [Unknown]
  - Blood pressure increased [Unknown]
  - Dizziness [Unknown]
  - Sneezing [Unknown]
  - Productive cough [Recovered/Resolved]

NARRATIVE: CASE EVENT DATE: 20200705
